FAERS Safety Report 18440910 (Version 1)
Quarter: 2020Q4

REPORT INFORMATION
  Report Type: Spontaneous
  Country: US (occurrence: US)
  Receive Date: 20201029
  Receipt Date: 20201029
  Transmission Date: 20210114
  Serious: Yes (Hospitalization)
  Sender: FDA-Public Use
  Company Number: None

PATIENT
  Age: 78 Year
  Sex: Female
  Weight: 54.8 kg

DRUGS (5)
  1. RUXOLITINIB 20MG TWICE DAILY [Suspect]
     Active Substance: RUXOLITINIB
     Indication: GLIOBLASTOMA
     Route: 048
     Dates: start: 20200819, end: 20200925
  2. TYLENOL [Concomitant]
     Active Substance: ACETAMINOPHEN
  3. ZOFRAN [Concomitant]
     Active Substance: ONDANSETRON HYDROCHLORIDE
  4. TRAZODONE [Concomitant]
     Active Substance: TRAZODONE HYDROCHLORIDE
  5. TEMOZOLOMIDE 120MG DAILY [Suspect]
     Active Substance: TEMOZOLOMIDE
     Indication: GLIOBLASTOMA
     Route: 048
     Dates: start: 20200819, end: 20200925

REACTIONS (7)
  - Leukopenia [None]
  - Thrombocytopenia [None]
  - Blood culture positive [None]
  - Febrile neutropenia [None]
  - Brain oedema [None]
  - Skin abrasion [None]
  - Fall [None]

NARRATIVE: CASE EVENT DATE: 20201002
